FAERS Safety Report 18794545 (Version 2)
Quarter: 2021Q1

REPORT INFORMATION
  Report Type: Report from Study
  Country: US (occurrence: US)
  Receive Date: 20210127
  Receipt Date: 20210219
  Transmission Date: 20210419
  Serious: Yes (Other)
  Sender: FDA-Public Use
  Company Number: US-JAZZ-2021-US-000407

PATIENT
  Age: 39 Year
  Sex: Female

DRUGS (2)
  1. XYREM [Suspect]
     Active Substance: SODIUM OXYBATE
     Indication: NARCOLEPSY
     Dosage: 2 GRAM, BID
     Route: 048
     Dates: start: 20210109
  2. XYREM [Suspect]
     Active Substance: SODIUM OXYBATE
     Indication: CATAPLEXY

REACTIONS (14)
  - Pain in jaw [Unknown]
  - Muscle contractions involuntary [Unknown]
  - Arthralgia [Recovering/Resolving]
  - Dizziness [Unknown]
  - Pyrexia [Recovered/Resolved]
  - Facial pain [Unknown]
  - Postural orthostatic tachycardia syndrome [Unknown]
  - Nephrolithiasis [Recovered/Resolved]
  - Hangover [Not Recovered/Not Resolved]
  - Nausea [Unknown]
  - Condition aggravated [Unknown]
  - Flushing [Recovered/Resolved]
  - Autonomic nervous system imbalance [Unknown]
  - Feeling abnormal [Unknown]

NARRATIVE: CASE EVENT DATE: 20210110
